FAERS Safety Report 5755979-2 (Version None)
Quarter: 2008Q2

REPORT INFORMATION
  Report Type: 
  Country: None (occurrence: None)
  Receive Date: 20080602
  Receipt Date: 20080501
  Transmission Date: 20081010
  Serious: No
  Sender: FDA-Public Use
  Company Number: US-BAYER-200810203BCC

PATIENT
  Age: 75 Year
  Sex: Female
  Weight: 50 kg

DRUGS (5)
  1. ALEVE [Suspect]
     Indication: PROCEDURAL PAIN
     Dosage: UNIT DOSE: 220 MG
     Route: 048
     Dates: start: 20071101
  2. METHOTREXATE [Concomitant]
  3. CELEBREX [Concomitant]
  4. HYDROXYCHLOROQUINE SULFATE [Concomitant]
  5. NEXIUM [Concomitant]

REACTIONS (1)
  - OESOPHAGEAL PAIN [None]
